FAERS Safety Report 13888791 (Version 1)
Quarter: 2017Q3

REPORT INFORMATION
  Report Type: Spontaneous
  Country: US (occurrence: US)
  Receive Date: 20170822
  Receipt Date: 20170822
  Transmission Date: 20171127
  Serious: Yes (Other)
  Sender: FDA-Public Use
  Company Number: US-ROCHE-1153184

PATIENT
  Sex: Female
  Weight: 94.89 kg

DRUGS (9)
  1. GLUCOSAMINE CHONDROITIN COMPLEX [Concomitant]
     Active Substance: CHONDROITIN SULFATE (BOVINE)\GLUCOSAMINE HYDROCHLORIDE
     Route: 048
     Dates: start: 20100607
  2. ATENOLOL. [Concomitant]
     Active Substance: ATENOLOL
     Route: 048
     Dates: start: 20080906
  3. FISH OIL [Concomitant]
     Active Substance: FISH OIL
     Route: 048
     Dates: start: 20100607
  4. ACTEMRA [Suspect]
     Active Substance: TOCILIZUMAB
     Indication: RHEUMATOID ARTHRITIS
     Dosage: CONCENTRATION: 400 MG/20ML, IV SOLUTION: 750 MG MONTHLY
     Route: 042
     Dates: start: 20110221
  5. ASPIRIN. [Concomitant]
     Active Substance: ASPIRIN
     Route: 048
     Dates: start: 20100607
  6. HYDROCHLOROTHIAZIDE. [Concomitant]
     Active Substance: HYDROCHLOROTHIAZIDE
     Route: 048
     Dates: start: 20110815
  7. PREDNISONE. [Concomitant]
     Active Substance: PREDNISONE
     Dosage: FREQUENCE: 4 TAB ORAL DAILY FOR 3 DAYS, THEN 3 TAB ORAL DAILY FOR 3 DAYS, THEN 2 TAB ORAL DAILY FOR
     Route: 048
     Dates: start: 20110922
  8. ATORVASTATIN CALCIUM. [Concomitant]
     Active Substance: ATORVASTATIN CALCIUM
     Route: 048
     Dates: start: 20091102
  9. OMEPRAZOLE. [Concomitant]
     Active Substance: OMEPRAZOLE
     Route: 048
     Dates: start: 20070905

REACTIONS (1)
  - Anaphylactic reaction [Unknown]

NARRATIVE: CASE EVENT DATE: 20121106
